FAERS Safety Report 14950483 (Version 1)
Quarter: 2018Q2

REPORT INFORMATION
  Report Type: Spontaneous
  Country: FR (occurrence: FR)
  Receive Date: 20180530
  Receipt Date: 20180530
  Transmission Date: 20180711
  Serious: Yes (Death)
  Sender: FDA-Public Use
  Company Number: FR-ORPHAN EUROPE-2048642

PATIENT
  Age: 8 Year
  Sex: Female
  Weight: 26 kg

DRUGS (7)
  1. CARBAGLU [Suspect]
     Active Substance: CARGLUMIC ACID
     Indication: ENCEPHALOPATHY
     Route: 048
     Dates: start: 200812
  2. VALIUM [Concomitant]
     Active Substance: DIAZEPAM
     Route: 048
  3. VENTOLINE [Concomitant]
     Active Substance: ALBUTEROL
     Route: 055
  4. CARBAGLU [Suspect]
     Active Substance: CARGLUMIC ACID
     Indication: N-ACETYLGLUTAMATE SYNTHASE DEFICIENCY
     Route: 048
     Dates: start: 200812
  5. ZONEGRAN [Concomitant]
     Active Substance: ZONISAMIDE
     Route: 048
  6. PULMICORT TURBUHALER [Concomitant]
     Active Substance: BUDESONIDE
     Route: 055
  7. URBANYL [Concomitant]
     Active Substance: CLOBAZAM
     Route: 048

REACTIONS (2)
  - Respiratory failure [Fatal]
  - Lung disorder [Fatal]

NARRATIVE: CASE EVENT DATE: 20160903
